FAERS Safety Report 6263802-5 (Version None)
Quarter: 2009Q3

REPORT INFORMATION
  Report Type: 
  Country: None (occurrence: None)
  Receive Date: 20090710
  Receipt Date: 20090708
  Transmission Date: 20100115
  Serious: Yes (Death)
  Sender: FDA-Public Use
  Company Number: PHEH2009US06786

PATIENT
  Sex: Male

DRUGS (15)
  1. TASIGNA [Suspect]
     Indication: GASTROINTESTINAL STROMAL TUMOUR
     Dosage: 200 MG, BID
     Route: 048
     Dates: start: 20090311, end: 20090323
  2. TOPROL-XL [Concomitant]
     Dosage: 25 MG, QD
     Route: 048
  3. ACCUPRIL [Concomitant]
     Dosage: 25 MG, QD
     Route: 048
  4. OXYCONTIN [Concomitant]
  5. COUMADIN [Concomitant]
     Dosage: 3 MG, X6 DAYS
     Route: 048
  6. COUMADIN [Concomitant]
     Dosage: 5 MG, X1 DAY
     Route: 048
  7. ZANTAC [Concomitant]
     Dosage: 150 MG, BID PRN
     Route: 048
  8. COMPAZINE [Concomitant]
     Dosage: 10 MG, Q 6-8 H PRN
     Route: 048
  9. LORAZEPAM [Concomitant]
     Dosage: 0.5 MG, 1-2  Q 8-10 HRS
     Route: 048
  10. LASIX [Concomitant]
     Dosage: 40 MG, QD PRN
     Route: 048
  11. POTASSIUM CHLORIDE [Concomitant]
     Dosage: 20 MEQ, QD WITH LASIX
  12. ZANAFLEX [Concomitant]
     Dosage: 4 MG, Q8H PRN
     Route: 048
  13. SUTENT [Concomitant]
     Dosage: ONE, QD X28DAYS THEN OFF 14 DAYS
     Dates: end: 20090201
  14. MEGACE [Concomitant]
     Dosage: , 1 TBLS QD
     Route: 048
  15. PREDNISONE TAB [Concomitant]
     Dosage: 5 MG, QD
     Route: 048

REACTIONS (1)
  - MALIGNANT NEOPLASM PROGRESSION [None]
